FAERS Safety Report 4632780-4 (Version None)
Quarter: 2005Q2

REPORT INFORMATION
  Report Type: 
  Country: None (occurrence: None)
  Receive Date: 20050408
  Receipt Date: 20050408
  Transmission Date: 20051028
  Serious: No
  Sender: FDA-Public Use
  Company Number: None

PATIENT
  Age: 47 Year
  Sex: Female
  Weight: 100 kg

DRUGS (2)
  1. GABAPENTIN [Suspect]
     Indication: EAR PAIN
     Dosage: 1200 MG PO TID
     Route: 048
     Dates: start: 20041101
  2. GABAPENTIN [Suspect]
     Indication: FACIAL NEURALGIA
     Dosage: 1200 MG PO TID
     Route: 048
     Dates: start: 20041101

REACTIONS (2)
  - INADEQUATE ANALGESIA [None]
  - PHARMACEUTICAL PRODUCT COMPLAINT [None]
